FAERS Safety Report 10145990 (Version 1)
Quarter: 2014Q2

REPORT INFORMATION
  Report Type: Spontaneous
  Country: US (occurrence: US)
  Receive Date: 20140501
  Receipt Date: 20140501
  Transmission Date: 20141212
  Serious: Yes (Hospitalization)
  Sender: FDA-Public Use
  Company Number: US-ROCHE-1387009

PATIENT
  Sex: Male
  Weight: 62.29 kg

DRUGS (13)
  1. XELODA [Suspect]
     Indication: PRODUCT USED FOR UNKNOWN INDICATION
     Route: 048
     Dates: start: 20140103
  2. EPIRUBICIN [Suspect]
     Indication: PRODUCT USED FOR UNKNOWN INDICATION
     Route: 065
  3. OXALIPLATIN [Concomitant]
     Indication: PRODUCT USED FOR UNKNOWN INDICATION
     Route: 065
  4. ADVAIR DISKUS [Concomitant]
     Dosage: DOSE: 100-50 MCG DISK, TAKE 1 PUFF BY INHALATION
     Route: 065
  5. CARVEDILOL [Concomitant]
     Route: 048
  6. DILAUDID [Concomitant]
     Route: 048
  7. EMLA [Concomitant]
     Dosage: APPLY DIME SIZE AMOUNT OF CREAM ONTO PORT 1 HOUR PRIOR TO APPOINTMENT
     Route: 065
  8. FERROUS SULPHATE [Concomitant]
     Dosage: 325 (65) MG
     Route: 048
  9. ISOSORBIDE MONONITRATE [Concomitant]
     Route: 048
  10. LISINOPRIL [Concomitant]
     Route: 048
  11. OMEPRAZOLE [Concomitant]
     Route: 048
  12. ONDANSETRON [Concomitant]
     Route: 065
  13. RANITIDINE HYDROCHLORIDE [Concomitant]
     Route: 048

REACTIONS (16)
  - Cardiomyopathy [Unknown]
  - Colitis ischaemic [Recovered/Resolved]
  - Neutropenic colitis [Recovered/Resolved]
  - Septic shock [Unknown]
  - Fatigue [Unknown]
  - Nausea [Unknown]
  - Tinnitus [Unknown]
  - Sinus congestion [Unknown]
  - Oedema peripheral [Recovering/Resolving]
  - White blood cell count decreased [Unknown]
  - Ejection fraction decreased [Recovered/Resolved]
  - Dyspnoea exertional [Unknown]
  - Iron deficiency anaemia [Not Recovered/Not Resolved]
  - Weight decreased [Unknown]
  - Hypotension [Unknown]
  - Blood albumin decreased [Recovering/Resolving]
